FAERS Safety Report 5754319-2 (Version None)
Quarter: 2008Q2

REPORT INFORMATION
  Report Type: 
  Country: None (occurrence: None)
  Receive Date: 20080530
  Receipt Date: 20080523
  Transmission Date: 20081010
  Serious: Yes (Hospitalization)
  Sender: FDA-Public Use
  Company Number: US-BAXTER-2008BH002187

PATIENT
  Age: 81 Year
  Sex: Male
  Weight: 70 kg

DRUGS (1)
  1. HEPARIN SODIUM INJECTION [Suspect]
     Indication: HAEMODIALYSIS
     Dosage: DOSE UNIT:UNKNOWN
     Route: 065
     Dates: end: 20071024

REACTIONS (15)
  - ANAEMIA [None]
  - ASTHENIA [None]
  - BLOOD GLUCOSE DECREASED [None]
  - BLOOD PRESSURE DECREASED [None]
  - DIARRHOEA [None]
  - DYSPNOEA [None]
  - HYPERHIDROSIS [None]
  - LACRIMATION INCREASED [None]
  - LETHARGY [None]
  - MALAISE [None]
  - MUSCLE SPASMS [None]
  - NAUSEA [None]
  - SOMNOLENCE [None]
  - THIRST [None]
  - UNRESPONSIVE TO STIMULI [None]
